FAERS Safety Report 9049015 (Version 1)
Quarter: 2013Q1

REPORT INFORMATION
  Report Type: Spontaneous
  Country: FR (occurrence: None)
  Receive Date: 20130117
  Receipt Date: 20130117
  Transmission Date: 20140127
  Serious: Yes (Other)
  Sender: FDA-Public Use
  Company Number: DSA_61896_2013

PATIENT
  Age: 50 Year
  Sex: Male

DRUGS (2)
  1. FLAGYL /00012501/ (FLAGYL-METREONIDAZOLE) (NOT SPECIFIED) [Suspect]
     Indication: TOOTH ABSCESS
     Route: 048
     Dates: start: 201212
  2. AMOXICILLIN (AMOXICILLIN) [Suspect]
     Indication: TOOTH ABSCESS
     Route: 048
     Dates: start: 201212

REACTIONS (6)
  - Urticaria [None]
  - Pruritus [None]
  - Face oedema [None]
  - Eyelid disorder [None]
  - Lip disorder [None]
  - Mucous membrane disorder [None]
